FAERS Safety Report 22196326 (Version 4)
Quarter: 2023Q2

REPORT INFORMATION
  Report Type: Spontaneous
  Country: JP (occurrence: JP)
  Receive Date: 20230411
  Receipt Date: 20230623
  Transmission Date: 20230722
  Serious: Yes (Other)
  Sender: FDA-Public Use
  Company Number: JP-GLAXOSMITHKLINE-JP2023JPN001253

PATIENT

DRUGS (7)
  1. DAPRODUSTAT [Suspect]
     Active Substance: DAPRODUSTAT
     Indication: Nephrogenic anaemia
     Dosage: 2 MG, QD, AFTER DINNER
     Dates: start: 20221122, end: 20221219
  2. FORXIGA TABLET [Concomitant]
     Dosage: 10 MG, QD
  3. TELMISARTAN [Concomitant]
     Active Substance: TELMISARTAN
     Dosage: 40 MG, QD
  4. AMLODIPINE BESILATE ORALLY DISINTEGRATING TABLET [Concomitant]
     Dosage: 5 MG, QD
  5. ASPIRIN ENTERIC-COATED TABLET [Concomitant]
     Dosage: 100 MG, QD, AFTER BREAKFAST
  6. ETHYL ICOSAPENTATE GRANULAR CAPSULE [Concomitant]
     Dosage: 900 MG, BID, AFTER BREAKFAST AND DINNER
  7. CARVEDILOL [Concomitant]
     Active Substance: CARVEDILOL
     Dosage: 10 MG, BID, AFTER BREAKFAST AND DINNER

REACTIONS (1)
  - Renal impairment [Not Recovered/Not Resolved]

NARRATIVE: CASE EVENT DATE: 20221219
